FAERS Safety Report 6214134-2 (Version None)
Quarter: 2009Q2

REPORT INFORMATION
  Report Type: 
  Country: None (occurrence: None)
  Receive Date: 20090604
  Receipt Date: 20090527
  Transmission Date: 20091009
  Serious: Yes (Hospitalization)
  Sender: FDA-Public Use
  Company Number: US-BIOGENIDEC-2009BI013254

PATIENT
  Age: 51 Year
  Sex: Female

DRUGS (2)
  1. TYSABRI [Suspect]
     Indication: MULTIPLE SCLEROSIS
     Route: 042
     Dates: start: 20080708
  2. SODIUM CHLORIDE [Concomitant]
     Route: 042
     Dates: start: 20090408

REACTIONS (7)
  - BALANCE DISORDER [None]
  - EAR PAIN [None]
  - INFECTION [None]
  - MULTIPLE SCLEROSIS RELAPSE [None]
  - OROPHARYNGEAL PAIN [None]
  - SEPSIS [None]
  - URINARY TRACT INFECTION [None]
